FAERS Safety Report 8793554 (Version 3)
Quarter: 2012Q4

REPORT INFORMATION
  Report Type: 
  Country: AU (occurrence: AU)
  Receive Date: 20120918
  Receipt Date: 20121010
  Transmission Date: 20130627
  Serious: Yes (Hospitalization, Other)
  Sender: FDA-Public Use
  Company Number: PHHY2012AU080862

PATIENT
  Sex: Female

DRUGS (5)
  1. CLOZARIL [Suspect]
     Indication: SCHIZOAFFECTIVE DISORDER
     Dosage: 500 mg
     Route: 048
     Dates: start: 19970505
  2. CLOZARIL [Suspect]
     Dosage: 400 mg
     Route: 048
     Dates: start: 20120927
  3. LITHIUM CARBONATE [Concomitant]
     Indication: SCHIZOAFFECTIVE DISORDER
     Dosage: 450 mg, Mane
     Route: 048
  4. LITHIUM CARBONATE [Concomitant]
     Dosage: 900 mg, Nocte
  5. FISH OIL [Concomitant]
     Dosage: 1 g, QD
     Route: 048

REACTIONS (6)
  - Psychotic disorder [Recovering/Resolving]
  - Paranoia [Recovering/Resolving]
  - Thought blocking [Recovering/Resolving]
  - Confusional state [Recovering/Resolving]
  - C-reactive protein increased [Unknown]
  - Blood alkaline phosphatase increased [Unknown]
